FAERS Safety Report 4471281-3 (Version None)
Quarter: 2004Q4

REPORT INFORMATION
  Report Type: 
  Country: None (occurrence: None)
  Receive Date: 20041011
  Receipt Date: 20041004
  Transmission Date: 20050328
  Serious: Yes (Other)
  Sender: FDA-Public Use
  Company Number: GB-MERCK-0410GBR00042

PATIENT
  Age: 78 Year
  Sex: Male

DRUGS (2)
  1. OMEPRAZOLE [Concomitant]
     Indication: DYSPEPSIA
     Route: 048
  2. VIOXX [Suspect]
     Indication: ARTHRITIS
     Route: 048
     Dates: start: 20030611, end: 20040916

REACTIONS (2)
  - BLOOD PRESSURE INCREASED [None]
  - PAIN [None]
